FAERS Safety Report 8391843-0 (Version None)
Quarter: 2012Q2

REPORT INFORMATION
  Report Type: 
  Country: None (occurrence: None)
  Receive Date: 20120529
  Receipt Date: 20120528
  Transmission Date: 20120825
  Serious: Yes (Hospitalization)
  Sender: FDA-Public Use
  Company Number: US-GLAXOSMITHKLINE-A0934578A

PATIENT
  Age: 76 Year
  Sex: Male

DRUGS (1)
  1. AVANDIA [Suspect]
     Indication: DIABETES MELLITUS
     Route: 048
     Dates: end: 20070101

REACTIONS (5)
  - MYOCARDIAL INFARCTION [None]
  - DYSPNOEA [None]
  - DIZZINESS [None]
  - LOSS OF CONSCIOUSNESS [None]
  - CARDIAC PACEMAKER INSERTION [None]
